FAERS Safety Report 9173439 (Version 1)
Quarter: 2013Q1

REPORT INFORMATION
  Report Type: Spontaneous
  Country: US (occurrence: None)
  Receive Date: 20130318
  Receipt Date: 20130318
  Transmission Date: 20140127
  Serious: Yes (Life-Threatening, Disabling, Other)
  Sender: FDA-Public Use
  Company Number: None

PATIENT
  Age: 44 Year
  Sex: Female
  Weight: 66.68 kg

DRUGS (1)
  1. MIRENA [Suspect]
     Indication: MENORRHAGIA
     Dates: start: 20100602, end: 20130228

REACTIONS (7)
  - Menorrhagia [None]
  - Muscle spasms [None]
  - Staphylococcal infection [None]
  - Vaginal haemorrhage [None]
  - Pathogen resistance [None]
  - Breast cancer [None]
  - Immune system disorder [None]
